FAERS Safety Report 23949903 (Version 2)
Quarter: 2025Q1

REPORT INFORMATION
  Report Type: Spontaneous
  Country: US (occurrence: US)
  Receive Date: 20240607
  Receipt Date: 20250331
  Transmission Date: 20250408
  Serious: No
  Sender: SANOFI AVENTIS
  Company Number: US-SA-SAC20240604000479

PATIENT
  Age: 54 Year
  Sex: Male
  Weight: 81.646 kg

DRUGS (6)
  1. DUPIXENT [Suspect]
     Active Substance: DUPILUMAB
     Indication: Dermatitis atopic
     Dosage: 300 MG, QOW
     Route: 058
     Dates: start: 20240214, end: 202503
  2. DUPIXENT [Suspect]
     Active Substance: DUPILUMAB
     Dosage: 300 MG, Q4W
     Route: 058
     Dates: start: 202503
  3. TADALAFIL [Concomitant]
     Active Substance: TADALAFIL
  4. ALBUTEROL SULFATE [Concomitant]
     Active Substance: ALBUTEROL SULFATE
  5. ADVAIR HFA [Concomitant]
     Active Substance: FLUTICASONE PROPIONATE\SALMETEROL XINAFOATE
  6. BENADRYL ALLERGY [Concomitant]
     Active Substance: DIPHENHYDRAMINE HYDROCHLORIDE

REACTIONS (7)
  - Rhinorrhoea [Unknown]
  - Muscle spasms [Unknown]
  - Middle insomnia [Unknown]
  - Injury [Unknown]
  - Arthralgia [Unknown]
  - Conjunctivitis [Unknown]
  - Off label use [Unknown]

NARRATIVE: CASE EVENT DATE: 20240401
